FAERS Safety Report 5919762-7 (Version None)
Quarter: 2008Q4

REPORT INFORMATION
  Report Type: 
  Country: None (occurrence: None)
  Receive Date: 20081015
  Receipt Date: 20081006
  Transmission Date: 20090506
  Serious: Yes (Life-Threatening, Hospitalization)
  Sender: FDA-Public Use
  Company Number: DE-PFIZER INC-2008084053

PATIENT
  Sex: Female
  Weight: 57 kg

DRUGS (1)
  1. SORTIS [Suspect]
     Indication: HYPERCHOLESTEROLAEMIA

REACTIONS (1)
  - BRAIN STEM HAEMORRHAGE [None]
